FAERS Safety Report 5211498-3 (Version None)
Quarter: 2006Q4

REPORT INFORMATION
  Report Type: 
  Country: None (occurrence: None)
  Receive Date: 20061115
  Receipt Date: 20060627
  Transmission Date: 20070319
  Serious: No
  Sender: FDA-Public Use
  Company Number: 200614468BWH

PATIENT
  Sex: Female

DRUGS (6)
  1. NEXAVAR [Suspect]
     Indication: ANAPLASTIC THYROID CANCER
     Dosage: ORAL
     Route: 048
     Dates: start: 20060622, end: 20060625
  2. SYNTHROID [Concomitant]
  3. EVISTA [Concomitant]
  4. FOSAMAX [Concomitant]
  5. TOPROL-XL [Concomitant]
  6. LOVASTATIN [Concomitant]

REACTIONS (3)
  - BLISTER [None]
  - ERYTHEMA [None]
  - SKIN LESION [None]
